FAERS Safety Report 8720913 (Version 2)
Quarter: 2012Q4

REPORT INFORMATION
  Report Type: 
  Country: JP (occurrence: JP)
  Receive Date: 20120813
  Receipt Date: 20120913
  Transmission Date: 20130627
  Serious: Yes (Hospitalization)
  Sender: FDA-Public Use
  Company Number: JP-AMGEN-JPNCT2012050222

PATIENT
  Age: 81 Year
  Sex: Male

DRUGS (9)
  1. DARBEPOETIN ALFA [Suspect]
     Indication: NEPHROGENIC ANAEMIA
     Dosage: 30 mug, qwk
     Route: 040
     Dates: start: 20101022
  2. TAKEPRON [Concomitant]
     Dosage: UNK
     Route: 048
  3. BAYASPIRIN [Concomitant]
     Dosage: UNK
     Route: 048
  4. CALBLOCK [Concomitant]
     Dosage: UNK
     Route: 048
  5. LASIX [Concomitant]
     Indication: NEPHROSCLEROSIS
     Dosage: UNK
     Route: 048
  6. ZETIA [Concomitant]
     Dosage: UNK
     Route: 048
  7. ADALAT [Concomitant]
     Dosage: UNK
     Route: 048
  8. LENDORMIN [Concomitant]
     Dosage: UNK
     Route: 048
  9. MICARDIS [Concomitant]
     Dosage: UNK
     Route: 048

REACTIONS (1)
  - Rectal cancer [Recovered/Resolved]
